FAERS Safety Report 9641579 (Version 1)
Quarter: 2013Q4

REPORT INFORMATION
  Report Type: Spontaneous
  Country: US (occurrence: None)
  Receive Date: 20131021
  Receipt Date: 20131021
  Transmission Date: 20140711
  Serious: Yes (Life-Threatening)
  Sender: FDA-Public Use
  Company Number: FK201304612

PATIENT
  Age: 54 Year
  Sex: 0

DRUGS (4)
  1. PROPOFOL [Suspect]
     Indication: GENERAL ANAESTHESIA
     Dosage: 1 DOSAGE FORMS, 1 IN ONCE, INTRAVENOUS
     Dates: start: 20130924, end: 20130924
  2. CELOCURINE [Suspect]
     Indication: GENERAL ANAESTHESIA
     Dosage: 1 DOSAGE FORMS 1 IN ONCE, INTRAVENOUS
     Dates: start: 20130924, end: 20130924
  3. MIDAZOLAM [Suspect]
     Indication: GENERAL ANAESTHESIA
     Dosage: 1 DOSAGE FORMS 1 IN ONCE, INTRAVENOUS
     Dates: start: 20130924, end: 20130924
  4. SUFENTA [Suspect]
     Indication: GENERAL ANAESTHESIA
     Dosage: 1 DOSAGE FORMS 1 IN ONCE, INTRAVENOUS
     Dates: start: 20130924, end: 20130924

REACTIONS (3)
  - Circulatory collapse [None]
  - Erythema [None]
  - Piloerection [None]
